FAERS Safety Report 26072672 (Version 1)
Quarter: 2025Q4

REPORT INFORMATION
  Report Type: Report from Study
  Country: US (occurrence: US)
  Receive Date: 20251120
  Receipt Date: 20251120
  Transmission Date: 20260118
  Serious: Yes (Death)
  Sender: BOEHRINGER INGELHEIM
  Company Number: US-BoehringerIngelheim-2025-BI-098767

PATIENT
  Age: 75 Year
  Sex: Female
  Weight: 69.9 kg

DRUGS (1)
  1. JARDIANCE [Suspect]
     Active Substance: EMPAGLIFLOZIN
     Indication: Cardiomyopathy
     Dates: start: 20241010

REACTIONS (1)
  - Sudden cardiac death [Fatal]
